FAERS Safety Report 6607808-2 (Version None)
Quarter: 2010Q1

REPORT INFORMATION
  Report Type: 
  Country: None (occurrence: None)
  Receive Date: 20100224
  Receipt Date: 20100224
  Transmission Date: 20100710
  Serious: No
  Sender: FDA-Public Use
  Company Number: None

PATIENT
  Age: 69 Year
  Sex: Female
  Weight: 104.3273 kg

DRUGS (2)
  1. ZYCAM NASEL SPRAY [Suspect]
     Indication: NASOPHARYNGITIS
  2. ZYCAM NASEL SPRAY [Suspect]
     Indication: SINUSITIS

REACTIONS (5)
  - AGEUSIA [None]
  - ANOSMIA [None]
  - HYPOACUSIS [None]
  - TINNITUS [None]
  - WEIGHT INCREASED [None]
